FAERS Safety Report 24238957 (Version 2)
Quarter: 2024Q3

REPORT INFORMATION
  Report Type: Spontaneous
  Country: IT (occurrence: IT)
  Receive Date: 20240822
  Receipt Date: 20240829
  Transmission Date: 20241017
  Serious: No
  Sender: INCYTE
  Company Number: IT-002147023-NVSC2024IT167574

PATIENT

DRUGS (1)
  1. RUXOLITINIB [Suspect]
     Active Substance: RUXOLITINIB
     Indication: Acute graft versus host disease
     Dosage: 5 MG, BID (1 TABLET, TWICE DAILY, NASOGASTRIC TUBE)
     Route: 045

REACTIONS (1)
  - Off label use [Unknown]
